FAERS Safety Report 4838457-4 (Version None)
Quarter: 2005Q4

REPORT INFORMATION
  Report Type: 
  Country: None (occurrence: None)
  Receive Date: 20051123
  Receipt Date: 20051116
  Transmission Date: 20060501
  Serious: Yes (Hospitalization, Other)
  Sender: FDA-Public Use
  Company Number: 2005157110

PATIENT
  Age: 77 Year
  Sex: Female
  Weight: 58.9676 kg

DRUGS (3)
  1. LIPITOR [Suspect]
     Indication: ILL-DEFINED DISORDER
     Dosage: 20 MG (20 MG, 1 IN 1 D), ORAL
     Route: 048
  2. CENTRUM SILVER (ASCORIC ACID, CALCIUM, MINERALS NOS, RETINOL, TOCOPHER [Concomitant]
  3. CLARINEX [Concomitant]

REACTIONS (3)
  - CHOLELITHIASIS [None]
  - MICTURITION URGENCY [None]
  - WEIGHT DECREASED [None]
